FAERS Safety Report 4610418-X (Version None)
Quarter: 2005Q1

REPORT INFORMATION
  Report Type: 
  Country: None (occurrence: None)
  Receive Date: 20050301
  Receipt Date: 20050110
  Transmission Date: 20050727
  Serious: No
  Sender: FDA-Public Use
  Company Number: WAES 0501USA00820

PATIENT
  Sex: Female

DRUGS (6)
  1. ZETIA [Suspect]
     Indication: BLOOD CHOLESTEROL INCREASED
     Dosage: 10 MG/DAILY/PO
     Route: 048
  2. NEURONTIN [Concomitant]
  3. PRAVACHOL [Concomitant]
  4. FOLIC ACID [Concomitant]
  5. INSULIN [Concomitant]
  6. METHOTREXATE [Concomitant]

REACTIONS (2)
  - DYSGEUSIA [None]
  - MEDICATION ERROR [None]
